FAERS Safety Report 5021055-X (Version None)
Quarter: 2006Q2

REPORT INFORMATION
  Report Type: 
  Country: None (occurrence: None)
  Receive Date: 20060414
  Receipt Date: 20060119
  Transmission Date: 20061013
  Serious: Yes (Other)
  Sender: FDA-Public Use
  Company Number: US-JNJFOC-20060103132

PATIENT
  Sex: Female

DRUGS (1)
  1. ULTRAM [Suspect]
     Indication: BACK PAIN

REACTIONS (1)
  - CONVULSION [None]
